FAERS Safety Report 13259866 (Version 1)
Quarter: 2017Q1

REPORT INFORMATION
  Report Type: Spontaneous
  Country: DE (occurrence: DE)
  Receive Date: 20170222
  Receipt Date: 20170222
  Transmission Date: 20170428
  Serious: Yes (Other)
  Sender: FDA-Public Use
  Company Number: DE-PFIZER INC-2017075103

PATIENT
  Sex: Male

DRUGS (1)
  1. DELIX [Suspect]
     Active Substance: RAMIPRIL
     Indication: HYPERTENSION
     Dosage: UNK UNK, 2X/DAY
     Route: 065

REACTIONS (2)
  - Angina pectoris [Recovering/Resolving]
  - Chest discomfort [Unknown]
